FAERS Safety Report 5541963-0 (Version None)
Quarter: 2007Q4

REPORT INFORMATION
  Report Type: 
  Country: None (occurrence: None)
  Receive Date: 20071210
  Receipt Date: 20071128
  Transmission Date: 20080405
  Serious: Yes (Hospitalization, Other)
  Sender: FDA-Public Use
  Company Number: PHBS2007JP20119

PATIENT
  Age: 52 Year
  Sex: Male

DRUGS (6)
  1. CISPLATIN [Concomitant]
     Indication: STEM CELL TRANSPLANT
     Dosage: 25 MG/M2/DAY
  2. FLUDARABINE PHOSPHATE [Concomitant]
     Indication: STEM CELL TRANSPLANT
     Dosage: 30 MG/M2 PER DAY
  3. CYTARABINE [Concomitant]
     Indication: STEM CELL TRANSPLANT
     Dosage: 1 G/M2 PER DAY
  4. TACROLIMUS [Concomitant]
     Indication: STEM CELL TRANSPLANT
  5. METHOTREXATE [Concomitant]
     Indication: STEM CELL TRANSPLANT
     Dosage: 8 MG/M2
  6. CYCLOSPORINE [Suspect]
     Indication: STEM CELL TRANSPLANT
     Dosage: UNK, UNK
     Route: 048
     Dates: start: 20001101, end: 20010201

REACTIONS (10)
  - BLOOD CREATININE INCREASED [None]
  - CHRONIC GRAFT VERSUS HOST DISEASE [None]
  - GENERALISED OEDEMA [None]
  - HAEMODIALYSIS [None]
  - HAEMOLYTIC URAEMIC SYNDROME [None]
  - RED BLOOD CELL SCHISTOCYTES PRESENT [None]
  - RENAL IMPAIRMENT [None]
  - RENAL TRANSPLANT [None]
  - THROMBOCYTOPENIA [None]
  - THROMBOTIC THROMBOCYTOPENIC PURPURA [None]
